FAERS Safety Report 21972777 (Version 1)
Quarter: 2023Q1

REPORT INFORMATION
  Report Type: Spontaneous
  Country: US (occurrence: US)
  Receive Date: 20230209
  Receipt Date: 20230209
  Transmission Date: 20230418
  Serious: No
  Sender: FDA-Public Use
  Company Number: US-009507513-2302USA000649

PATIENT
  Sex: Male

DRUGS (2)
  1. BELSOMRA [Suspect]
     Active Substance: SUVOREXANT
     Indication: Insomnia
     Dosage: 10 MILLIGRAM, AT NIGHT
     Route: 048
     Dates: start: 20230127, end: 20230128
  2. BELSOMRA [Suspect]
     Active Substance: SUVOREXANT
     Dosage: 20 MILLIGRAM, AT NIGHT
     Route: 048
     Dates: start: 20230129, end: 20230130

REACTIONS (7)
  - Drug ineffective [Unknown]
  - Vertigo [Unknown]
  - Dyspnoea [Unknown]
  - Hyperhidrosis [Unknown]
  - Frustration tolerance decreased [Unknown]
  - Anger [Unknown]
  - Dry mouth [Unknown]

NARRATIVE: CASE EVENT DATE: 20230128
